FAERS Safety Report 16122706 (Version 2)
Quarter: 2019Q4

REPORT INFORMATION
  Report Type: Report from Study
  Country: US (occurrence: US)
  Receive Date: 20190327
  Receipt Date: 20191115
  Transmission Date: 20200122
  Serious: Yes (Other)
  Sender: FDA-Public Use
  Company Number: US-SA-2019SA078553

PATIENT
  Age: 75 Year
  Sex: Male

DRUGS (1)
  1. TERIFLUNOMIDE. [Suspect]
     Active Substance: TERIFLUNOMIDE
     Indication: MULTIPLE SCLEROSIS
     Dosage: 14 MG, QD
     Route: 048
     Dates: start: 20170811

REACTIONS (9)
  - Musculoskeletal disorder [Unknown]
  - Asthenia [Unknown]
  - Alopecia [Unknown]
  - Speech disorder [Unknown]
  - Feeling hot [Unknown]
  - Gait inability [Not Recovered/Not Resolved]
  - Memory impairment [Unknown]
  - Paralysis [Unknown]
  - Rhinorrhoea [Unknown]
